FAERS Safety Report 7118801-8 (Version None)
Quarter: 2010Q4

REPORT INFORMATION
  Report Type: 
  Country: None (occurrence: None)
  Receive Date: 20101123
  Receipt Date: 20100804
  Transmission Date: 20110411
  Serious: No
  Sender: FDA-Public Use
  Company Number: US-KINGPHARMUSA00001-K201000982

PATIENT
  Age: 39 Year
  Sex: Male

DRUGS (2)
  1. FLECTOR [Suspect]
     Indication: MUSCULOSKELETAL PAIN
     Dosage: UNK PATCH, UNK
     Route: 061
     Dates: start: 20100802
  2. FLECTOR [Suspect]
     Indication: PAIN

REACTIONS (4)
  - ALCOHOL PROBLEM [None]
  - DRUG INEFFECTIVE [None]
  - FEELING ABNORMAL [None]
  - HYPERHIDROSIS [None]
